FAERS Safety Report 23426447 (Version 1)
Quarter: 2024Q1

REPORT INFORMATION
  Report Type: Report from Study
  Country: NL (occurrence: NL)
  Receive Date: 20240122
  Receipt Date: 20240122
  Transmission Date: 20240410
  Serious: Yes (Other)
  Sender: FDA-Public Use
  Company Number: NL-TEVA-2023-NL-2948089

PATIENT
  Age: 55 Year

DRUGS (1)
  1. COPAXONE [Suspect]
     Active Substance: GLATIRAMER ACETATE
     Indication: Relapsing multiple sclerosis
     Dosage: TIME INTERVAL: 0.333 WEEKS
     Route: 058

REACTIONS (3)
  - Cataract [Unknown]
  - Eye inflammation [Recovering/Resolving]
  - Coronavirus infection [Recovering/Resolving]

NARRATIVE: CASE EVENT DATE: 20230807
